FAERS Safety Report 7075583-6 (Version None)
Quarter: 2010Q4

REPORT INFORMATION
  Report Type: 
  Country: None (occurrence: None)
  Receive Date: 20101030
  Receipt Date: 20100929
  Transmission Date: 20110411
  Serious: No
  Sender: FDA-Public Use
  Company Number: US-WYE-H17922510

PATIENT
  Age: 55 Year
  Sex: Female
  Weight: 45.4 kg

DRUGS (6)
  1. PRISTIQ [Suspect]
     Indication: DEPRESSION
     Dates: start: 20091001, end: 20090101
  2. PRISTIQ [Suspect]
     Dates: start: 20090101, end: 20100501
  3. KLONOPIN [Concomitant]
  4. ROZEREM [Concomitant]
  5. SEROQUEL [Concomitant]
  6. REMERON [Concomitant]

REACTIONS (3)
  - DRUG EFFECT DECREASED [None]
  - INCORRECT ROUTE OF DRUG ADMINISTRATION [None]
  - TACHYCARDIA [None]
